FAERS Safety Report 7830129-7 (Version None)
Quarter: 2011Q4

REPORT INFORMATION
  Report Type: 
  Country: None (occurrence: None)
  Receive Date: 20111019
  Receipt Date: 20111007
  Transmission Date: 20120403
  Serious: Yes (Death, Life-Threatening, Hospitalization, Other)
  Sender: FDA-Public Use
  Company Number: FK201102136

PATIENT
  Age: 70 Year
  Sex: Female

DRUGS (2)
  1. WARFARIN SODIUM [Concomitant]
  2. HEPARIN SODIUM [Suspect]
     Indication: ANTIPLATELET THERAPY
     Dosage: 5000 IU, TID, SUBCUTANEOUS
     Route: 058

REACTIONS (9)
  - HAEMORRHAGE [None]
  - ATRIAL THROMBOSIS [None]
  - MITRAL VALVE STENOSIS [None]
  - HAEMODYNAMIC INSTABILITY [None]
  - COAGULOPATHY [None]
  - MULTI-ORGAN FAILURE [None]
  - POST PROCEDURAL COMPLICATION [None]
  - PULMONARY HYPERTENSION [None]
  - HEPARIN-INDUCED THROMBOCYTOPENIA [None]
